FAERS Safety Report 6055089-3 (Version None)
Quarter: 2009Q1

REPORT INFORMATION
  Report Type: 
  Country: None (occurrence: None)
  Receive Date: 20090122
  Receipt Date: 20090105
  Transmission Date: 20090719
  Serious: Yes (Other)
  Sender: FDA-Public Use
  Company Number: 09-ADE-SU-0001-DOR

PATIENT
  Age: 39 Year
  Sex: Female

DRUGS (1)
  1. DORAL [Suspect]
     Indication: DYSTHYMIC DISORDER
     Dates: start: 20080101

REACTIONS (1)
  - ECZEMA [None]
